FAERS Safety Report 13370691 (Version 8)
Quarter: 2017Q4

REPORT INFORMATION
  Report Type: Spontaneous
  Country: US (occurrence: US)
  Receive Date: 20170324
  Receipt Date: 20171114
  Transmission Date: 20180320
  Serious: Yes (Other)
  Sender: FDA-Public Use
  Company Number: US-BRISTOL-MYERS SQUIBB COMPANY-BMS-2017-024826

PATIENT
  Sex: Female
  Weight: 77.11 kg

DRUGS (7)
  1. ABILIFY [Suspect]
     Active Substance: ARIPIPRAZOLE
     Indication: BIPOLAR DISORDER
     Dosage: 15 MG, UNK
     Route: 048
     Dates: start: 20031222, end: 20150730
  2. TOPAMAX [Concomitant]
     Active Substance: TOPIRAMATE
     Indication: THINKING ABNORMAL
     Route: 065
  3. ABILIFY [Suspect]
     Active Substance: ARIPIPRAZOLE
     Indication: MAJOR DEPRESSION
     Dosage: 30 MG, UNK
     Route: 048
     Dates: start: 201201, end: 201507
  4. CYMBALTA [Concomitant]
     Active Substance: DULOXETINE HYDROCHLORIDE
     Indication: PRODUCT USED FOR UNKNOWN INDICATION
     Dosage: UNK
     Route: 048
     Dates: start: 20131006
  5. EFFEXOR [Concomitant]
     Active Substance: VENLAFAXINE HYDROCHLORIDE
     Indication: PRODUCT USED FOR UNKNOWN INDICATION
     Route: 065
  6. ZYPREXA [Concomitant]
     Active Substance: OLANZAPINE
     Indication: SLEEP DISORDER
     Route: 065
  7. DULOXETINE. [Concomitant]
     Active Substance: DULOXETINE
     Indication: PRODUCT USED FOR UNKNOWN INDICATION
     Dosage: 20 MG, UNK
     Route: 065

REACTIONS (14)
  - Pain [Not Recovered/Not Resolved]
  - Scoliosis [Unknown]
  - Osteopenia [Unknown]
  - Depression [Unknown]
  - Muscle spasms [Unknown]
  - Spinal osteoarthritis [Unknown]
  - Withdrawal syndrome [Unknown]
  - Anxiety [Unknown]
  - Nail disorder [Unknown]
  - Suicidal ideation [Unknown]
  - Gambling [Unknown]
  - Back pain [Unknown]
  - Chest discomfort [Unknown]
  - Intervertebral disc degeneration [Unknown]
